FAERS Safety Report 7468366-6 (Version None)
Quarter: 2011Q2

REPORT INFORMATION
  Report Type: 
  Country: None (occurrence: None)
  Receive Date: 20110509
  Receipt Date: 20110505
  Transmission Date: 20111010
  Serious: Yes (Life-Threatening, Hospitalization, Other)
  Sender: FDA-Public Use
  Company Number: SE-PFIZER INC-2011047626

PATIENT
  Age: 54 Year
  Sex: Male
  Weight: 110 kg

DRUGS (5)
  1. SUTENT [Suspect]
     Indication: METASTATIC RENAL CELL CARCINOMA
     Dosage: 50 MG, 1X/DAY, CYCLIC: 4/2
     Route: 048
     Dates: start: 20090101, end: 20100126
  2. NORVASC [Concomitant]
     Dosage: 5 MG, 1X/DAY
  3. SUTENT [Suspect]
     Indication: HEPATIC CANCER METASTATIC
  4. ENALAPRIL MALEATE [Concomitant]
     Dosage: 5 MG, 1X/DAY
  5. ATENOLOL [Concomitant]
     Dosage: 50 MG, 1X/DAY

REACTIONS (2)
  - DIARRHOEA [None]
  - LARGE INTESTINAL ULCER HAEMORRHAGE [None]
